FAERS Safety Report 5167933-2 (Version None)
Quarter: 2006Q4

REPORT INFORMATION
  Report Type: 
  Country: None (occurrence: None)
  Receive Date: 20061208
  Receipt Date: 20051019
  Transmission Date: 20070319
  Serious: No
  Sender: FDA-Public Use
  Company Number: US-GLAXOSMITHKLINE-A0578800A

PATIENT
  Age: 42 Year
  Sex: Male

DRUGS (11)
  1. AVANDAMET [Suspect]
     Dosage: 1TAB TWICE PER DAY
     Route: 048
  2. SOMA [Concomitant]
  3. XANAX [Concomitant]
  4. PERCOCET [Concomitant]
  5. SINGULAIR [Concomitant]
  6. ALBUTEROL [Concomitant]
  7. ADVAIR DISKUS 100/50 [Concomitant]
  8. ALLOPURINOL SODIUM [Concomitant]
  9. VERAPAMIL [Concomitant]
  10. DIOVAN [Concomitant]
  11. PREVACID [Concomitant]

REACTIONS (8)
  - DRUG INEFFECTIVE [None]
  - ERYTHEMA [None]
  - FLUID RETENTION [None]
  - GOUT [None]
  - INFECTION [None]
  - MUSCLE SPASMS [None]
  - OEDEMA PERIPHERAL [None]
  - SWELLING [None]
